FAERS Safety Report 12419206 (Version 1)
Quarter: 2016Q2

REPORT INFORMATION
  Report Type: Spontaneous
  Country: GB (occurrence: GB)
  Receive Date: 20160531
  Receipt Date: 20160531
  Transmission Date: 20160815
  Serious: Yes (Hospitalization, Other)
  Sender: FDA-Public Use
  Company Number: PHFR2016GB004236

PATIENT
  Age: 19 Year
  Sex: Female

DRUGS (1)
  1. NILOTINIB [Suspect]
     Active Substance: NILOTINIB
     Indication: BLAST CRISIS IN MYELOGENOUS LEUKAEMIA
     Dosage: 300 MG, BID
     Route: 065
     Dates: start: 20150126

REACTIONS (7)
  - Platelet count decreased [Unknown]
  - Neutrophil count decreased [Unknown]
  - Haemoglobin decreased [Unknown]
  - Abdominal pain [Unknown]
  - White blood cell count decreased [Unknown]
  - Hepatosplenomegaly [Unknown]
  - Pyrexia [Unknown]

NARRATIVE: CASE EVENT DATE: 20150130
